FAERS Safety Report 8080422-0 (Version None)
Quarter: 2012Q1

REPORT INFORMATION
  Report Type: 
  Country: None (occurrence: None)
  Receive Date: 20120130
  Receipt Date: 20120117
  Transmission Date: 20120608
  Serious: Yes (Other)
  Sender: FDA-Public Use
  Company Number: DE-UCBSA-050107

PATIENT
  Age: 44 Year
  Sex: Female

DRUGS (19)
  1. CARBAMAZEPINE [Concomitant]
  2. CLONAZEPAM [Concomitant]
  3. PHENOBARBITAL TAB [Concomitant]
  4. LEVETIRACETAM [Suspect]
     Dosage: DAILY DOSE:1000 MG
     Dates: start: 20100101
  5. PHENYTOIN [Concomitant]
  6. LACOSAMIDE [Suspect]
     Dosage: DAILY DOSE:200MG
  7. LACOSAMIDE [Suspect]
     Dosage: DAILY DOSE: 400 MG
  8. LEVETIRACETAM [Suspect]
     Dosage: DAILY DOSE:2000 MG
     Dates: start: 20090101
  9. LEVETIRACETAM [Suspect]
     Dosage: DAILY DOSE:500 MG
  10. VALPROIC ACID [Concomitant]
     Dosage: DAILY DOSE: 1500 MG
  11. LEVETIRACETAM [Suspect]
     Dosage: DAILY DOSE: 3000 MG
  12. LAMOTRIGINE [Concomitant]
     Dosage: DAILY DOSE: 250 MG
  13. PRIMIDONE [Concomitant]
  14. GABAPENTIN [Concomitant]
  15. LAMOTRIGINE [Concomitant]
     Dosage: DAILY DOSE:200 MG
  16. TOPIRAMATE [Concomitant]
     Dates: start: 19900101
  17. LEVETIRACETAM [Suspect]
     Dosage: DAILY DOSE:1000 MG
  18. VALPROIC ACID [Concomitant]
     Dosage: DAILY DOSE: 1000 MG
     Dates: start: 20111101
  19. TOPIRAMATE [Concomitant]
     Dosage: MAXIMUM DAILY DOSE: 200 MG/D
     Dates: start: 20111001

REACTIONS (4)
  - GAIT DISTURBANCE [None]
  - CONVULSION [None]
  - DIZZINESS [None]
  - DRUG INEFFECTIVE [None]
